FAERS Safety Report 23285798 (Version 1)
Quarter: 2023Q4

REPORT INFORMATION
  Report Type: Spontaneous
  Country: US (occurrence: US)
  Receive Date: 20231212
  Receipt Date: 20231212
  Transmission Date: 20240109
  Serious: Yes (Other)
  Sender: FDA-Public Use
  Company Number: US-BRISTOL-MYERS SQUIBB COMPANY-2023-175541

PATIENT

DRUGS (2)
  1. OPDIVO [Suspect]
     Active Substance: NIVOLUMAB
     Indication: Product used for unknown indication
     Dates: end: 201611
  2. YERVOY [Suspect]
     Active Substance: IPILIMUMAB
     Indication: Product used for unknown indication

REACTIONS (12)
  - Pain [Unknown]
  - Swelling [Unknown]
  - Headache [Unknown]
  - Vomiting [Unknown]
  - Cardiac disorder [Unknown]
  - Skin cancer [Unknown]
  - Asthenia [Unknown]
  - Fatigue [Unknown]
  - Peripheral swelling [Unknown]
  - Fibromyalgia [Unknown]
  - Injury [Unknown]
  - Skin disorder [Unknown]
